FAERS Safety Report 4389503-6 (Version None)
Quarter: 2004Q3

REPORT INFORMATION
  Report Type: 
  Country: None (occurrence: None)
  Receive Date: 20040702
  Receipt Date: 20040608
  Transmission Date: 20050211
  Serious: Yes (Other)
  Sender: FDA-Public Use
  Company Number: NL-GLAXOSMITHKLINE-B0335572A

PATIENT

DRUGS (3)
  1. SALBUTAMOL SULPHATE [Suspect]
  2. OXAZEPAM [Concomitant]
  3. VALIUM [Concomitant]

REACTIONS (1)
  - DRUG ABUSER [None]
